FAERS Safety Report 25805702 (Version 1)
Quarter: 2025Q3

REPORT INFORMATION
  Report Type: Spontaneous
  Country: US (occurrence: US)
  Receive Date: 20250916
  Receipt Date: 20250916
  Transmission Date: 20251020
  Serious: Yes (Other)
  Sender: ROCHE
  Company Number: US-BoehringerIngelheim-2025-BI-093315

PATIENT
  Age: 14 Year
  Sex: Male

DRUGS (2)
  1. METALYSE [Suspect]
     Active Substance: TENECTEPLASE
     Indication: Ischaemic stroke
     Route: 065
  2. ASPIRIN [Concomitant]
     Active Substance: ASPIRIN
     Indication: Ischaemic stroke

REACTIONS (4)
  - Brain oedema [Recovering/Resolving]
  - Cerebral mass effect [Recovering/Resolving]
  - Cerebral haematoma [Recovering/Resolving]
  - Off label use [Unknown]
